FAERS Safety Report 18135327 (Version 1)
Quarter: 2020Q3

REPORT INFORMATION
  Report Type: Spontaneous
  Country: US (occurrence: US)
  Receive Date: 20200811
  Receipt Date: 20200811
  Transmission Date: 20201103
  Serious: No
  Sender: FDA-Public Use
  Company Number: None

PATIENT
  Age: 63 Year
  Sex: Female

DRUGS (1)
  1. OXYCODONE [Suspect]
     Active Substance: OXYCODONE
     Dosage: ?          OTHER FREQUENCY:QID PRN PAIN;?
     Route: 048
     Dates: start: 20200716, end: 20200807

REACTIONS (2)
  - Nausea [None]
  - Product use complaint [None]

NARRATIVE: CASE EVENT DATE: 20200807
